FAERS Safety Report 8045296-2 (Version None)
Quarter: 2012Q1

REPORT INFORMATION
  Report Type: 
  Country: None (occurrence: None)
  Receive Date: 20120113
  Receipt Date: 20120111
  Transmission Date: 20120608
  Serious: Yes (Other)
  Sender: FDA-Public Use
  Company Number: US-ROCHE-794202

PATIENT
  Sex: Male
  Weight: 104.42 kg

DRUGS (2)
  1. ACCUTANE [Suspect]
     Indication: ACNE
     Route: 065
     Dates: start: 19830101, end: 19840101
  2. ACCUTANE [Suspect]
     Route: 065
     Dates: start: 19840201, end: 19850228

REACTIONS (4)
  - INTESTINAL OBSTRUCTION [None]
  - CROHN'S DISEASE [None]
  - COLITIS ULCERATIVE [None]
  - INFLAMMATORY BOWEL DISEASE [None]
